FAERS Safety Report 8220220-8 (Version None)
Quarter: 2012Q1

REPORT INFORMATION
  Report Type: 
  Country: None (occurrence: None)
  Receive Date: 20120315
  Receipt Date: 20120306
  Transmission Date: 20120608
  Serious: Yes (Life-Threatening, Hospitalization)
  Sender: FDA-Public Use
  Company Number: 2009SP023478

PATIENT
  Age: 33 Year
  Sex: Female
  Weight: 85.2762 kg

DRUGS (6)
  1. NUVARING [Suspect]
     Indication: MENSTRUATION IRREGULAR
     Dates: start: 20060801, end: 20061118
  2. NUVARING [Suspect]
     Indication: HAEMORRHAGE
     Dates: start: 20060801, end: 20061118
  3. NUVARING [Suspect]
     Indication: MENSTRUATION IRREGULAR
     Dates: start: 20070801, end: 20071101
  4. NUVARING [Suspect]
     Indication: HAEMORRHAGE
     Dates: start: 20070801, end: 20071101
  5. NEXIUM [Concomitant]
  6. PAXIL CR [Concomitant]

REACTIONS (3)
  - PULMONARY EMBOLISM [None]
  - VENOUS THROMBOSIS [None]
  - HEADACHE [None]
